FAERS Safety Report 14365662 (Version 2)
Quarter: 2019Q1

REPORT INFORMATION
  Report Type: Report from Study
  Country: US (occurrence: US)
  Receive Date: 20180109
  Receipt Date: 20190328
  Transmission Date: 20190417
  Serious: No
  Sender: FDA-Public Use
  Company Number: US-AMGEN-USASL2018001738

PATIENT
  Age: 61 Year
  Sex: Female

DRUGS (14)
  1. ENBREL [Suspect]
     Active Substance: ETANERCEPT
     Dosage: 50 MG, QWK
     Route: 058
     Dates: start: 201801
  2. PANTOPRAZOLE [Concomitant]
     Active Substance: PANTOPRAZOLE
     Dosage: UNK
  3. PROAIR HFA [Concomitant]
     Active Substance: ALBUTEROL SULFATE
     Dosage: UNK
  4. VOLTAREN [Concomitant]
     Active Substance: DICLOFENAC SODIUM
     Dosage: UNK
  5. CLOBETASOL [Concomitant]
     Active Substance: CLOBETASOL
     Dosage: UNK
  6. DULOXETINE. [Concomitant]
     Active Substance: DULOXETINE
     Dosage: UNK
  7. VESICARE [Concomitant]
     Active Substance: SOLIFENACIN SUCCINATE
     Dosage: UNK
  8. ENBREL [Suspect]
     Active Substance: ETANERCEPT
     Indication: PSORIATIC ARTHROPATHY
     Dosage: 50 MG, QWK
     Route: 058
     Dates: start: 2005, end: 201712
  9. SIMVASTATIN. [Concomitant]
     Active Substance: SIMVASTATIN
     Dosage: UNK
  10. LORAZEPAM. [Concomitant]
     Active Substance: LORAZEPAM
     Dosage: UNK
  11. LYRICA [Concomitant]
     Active Substance: PREGABALIN
     Dosage: UNK
  12. SALSALATE. [Concomitant]
     Active Substance: SALSALATE
     Dosage: UNK
  13. TACLONEX [Concomitant]
     Active Substance: BETAMETHASONE DIPROPIONATE\CALCIPOTRIENE\CALCIPOTRIENE HYDRATE
     Dosage: UNK
  14. TRAZODONE [Concomitant]
     Active Substance: TRAZODONE HYDROCHLORIDE
     Dosage: UNK

REACTIONS (5)
  - Mechanical urticaria [Unknown]
  - Injection site swelling [Unknown]
  - Bronchitis [Recovered/Resolved]
  - Injection site erythema [Unknown]
  - Injection site pruritus [Unknown]

NARRATIVE: CASE EVENT DATE: 20171211
